FAERS Safety Report 5316371-8 (Version None)
Quarter: 2007Q2

REPORT INFORMATION
  Report Type: 
  Country: None (occurrence: None)
  Receive Date: 20070430
  Receipt Date: 20070421
  Transmission Date: 20071010
  Serious: Yes (Hospitalization)
  Sender: FDA-Public Use
  Company Number: 2007SP007728

PATIENT
  Sex: Female

DRUGS (1)
  1. PEG-INTRON [Suspect]
     Indication: DRUG USE FOR UNKNOWN INDICATION

REACTIONS (2)
  - HAEMORRHAGE [None]
  - THROMBOCYTOPENIA [None]
